FAERS Safety Report 6698814-0 (Version None)
Quarter: 2010Q2

REPORT INFORMATION
  Report Type: 
  Country: None (occurrence: None)
  Receive Date: 20100427
  Receipt Date: 20100420
  Transmission Date: 20101027
  Serious: Yes (Hospitalization)
  Sender: FDA-Public Use
  Company Number: PHHO2010SE03258

PATIENT
  Sex: Male

DRUGS (1)
  1. ALISKIREN ALI+TAB [Suspect]
     Indication: ACUTE MYOCARDIAL INFARCTION
     Dosage: 150MG DAILY DOSE
     Route: 048
     Dates: start: 20081123

REACTIONS (3)
  - BONE PAIN [None]
  - GOUTY ARTHRITIS [None]
  - PYREXIA [None]
